FAERS Safety Report 21323427 (Version 1)
Quarter: 2022Q3

REPORT INFORMATION
  Report Type: Spontaneous
  Country: US (occurrence: None)
  Receive Date: 20220910
  Receipt Date: 20220910
  Transmission Date: 20221027
  Serious: Yes (Other)
  Sender: FDA-Public Use
  Company Number: None

PATIENT
  Age: 43 Year
  Sex: Female
  Weight: 83.25 kg

DRUGS (1)
  1. KEYTRUDA [Suspect]
     Active Substance: PEMBROLIZUMAB
     Indication: Conjunctival melanoma

REACTIONS (7)
  - Drug hypersensitivity [None]
  - Palpitations [None]
  - Tremor [None]
  - Asthenia [None]
  - Cold sweat [None]
  - Chest discomfort [None]
  - Hyperhidrosis [None]

NARRATIVE: CASE EVENT DATE: 20220909
